FAERS Safety Report 9681282 (Version 2)
Quarter: 2013Q4

REPORT INFORMATION
  Report Type: Report from Study
  Country: JP (occurrence: JP)
  Receive Date: 20131111
  Receipt Date: 20131218
  Transmission Date: 20140711
  Serious: Yes (Other)
  Sender: FDA-Public Use
  Company Number: JP-PFIZER INC-2013315584

PATIENT
  Age: 70 Year
  Sex: Male
  Weight: 58 kg

DRUGS (6)
  1. XALKORI [Suspect]
     Indication: LUNG NEOPLASM MALIGNANT
     Dosage: 250 MG, 2X/DAY
     Route: 048
     Dates: start: 20131015, end: 20131020
  2. OXINORM [Suspect]
     Dosage: 10 MG, UNK
     Dates: end: 20131020
  3. OXYCONTIN [Suspect]
     Dosage: 40 MG, 2X/DAY
     Dates: end: 20131020
  4. U PAN [Concomitant]
  5. LYRICA [Concomitant]
  6. MORPHINE HYDROCHLORIDE [Concomitant]
     Dosage: UNK

REACTIONS (2)
  - Delirium [Recovered/Resolved]
  - Altered state of consciousness [Recovered/Resolved]
